FAERS Safety Report 9677105 (Version 1)
Quarter: 2013Q4

REPORT INFORMATION
  Report Type: Spontaneous
  Country: US (occurrence: US)
  Receive Date: 20131108
  Receipt Date: 20131108
  Transmission Date: 20140711
  Serious: No
  Sender: FDA-Public Use
  Company Number: US-009507513-1310USA015441

PATIENT
  Sex: Male

DRUGS (1)
  1. AZASITE [Suspect]
     Dosage: 2.5 ML, UNK
     Route: 047
     Dates: start: 201110

REACTIONS (1)
  - Eye disorder [Unknown]
